FAERS Safety Report 15240621 (Version 1)
Quarter: 2018Q3

REPORT INFORMATION
  Report Type: Spontaneous
  Country: IN (occurrence: IN)
  Receive Date: 20180804
  Receipt Date: 20180804
  Transmission Date: 20181010
  Serious: Yes (Other)
  Sender: FDA-Public Use
  Company Number: IN-AMGEN-INDSP2018082705

PATIENT
  Age: 66 Year

DRUGS (1)
  1. ENBREL [Suspect]
     Active Substance: ETANERCEPT
     Indication: PSORIATIC ARTHROPATHY
     Dosage: 25 MG, 1X/DAY
     Route: 065
     Dates: start: 2013

REACTIONS (2)
  - Off label use [Unknown]
  - Tuberculosis [Unknown]

NARRATIVE: CASE EVENT DATE: 201803
